FAERS Safety Report 11276223 (Version 1)
Quarter: 2015Q2

REPORT INFORMATION
  Report Type: Spontaneous
  Country: US (occurrence: None)
  Receive Date: 20150625
  Receipt Date: 20150625
  Transmission Date: 20150821
  Serious: No
  Sender: FDA-Public Use
  Company Number: A-US2015-114588

PATIENT
  Age: 77 Year
  Sex: Male

DRUGS (2)
  1. OPSUMIT [Suspect]
     Active Substance: MACITENTAN
     Indication: PULMONARY ARTERIAL HYPERTENSION
     Route: 048
     Dates: start: 20141125
  2. TREPROSTINIL DIOLAMIN (TREPROSTINIL DIOLAMIN) [Concomitant]

REACTIONS (3)
  - Nasopharyngitis [None]
  - Nasal congestion [None]
  - Sinus congestion [None]
